FAERS Safety Report 21970444 (Version 3)
Quarter: 2023Q1

REPORT INFORMATION
  Report Type: Spontaneous
  Country: EG (occurrence: EG)
  Receive Date: 20230209
  Receipt Date: 20230302
  Transmission Date: 20230418
  Serious: Yes (Hospitalization, Other)
  Sender: FDA-Public Use
  Company Number: EG-NOVOPROD-1019880

PATIENT
  Age: 818 Month
  Sex: Female
  Weight: 85 kg

DRUGS (5)
  1. BISOPROLOL FUMARATE [Concomitant]
     Active Substance: BISOPROLOL FUMARATE
     Indication: Hypertension
     Dosage: 0.5 TAB/DAILY
     Route: 048
  2. INSULIN HUMAN [Suspect]
     Active Substance: INSULIN HUMAN
     Indication: Diabetes mellitus
     Dosage: 30 IU, QD(BEFORE BREAKFAST)
     Route: 058
  3. LINCOCIN [CLINDAMYCIN] [Concomitant]
     Indication: Heart rate irregular
     Dosage: 1 TAB/AFTER LUNCH AND SOMETIMES STOP IT, WITH TWICE /WEEKLY
     Route: 048
  4. BENFOTIAMINE\CYANOCOBALAMIN\PYRIDOXINE HYDROCHLORIDE [Concomitant]
     Active Substance: BENFOTIAMINE\CYANOCOBALAMIN\PYRIDOXINE HYDROCHLORIDE
     Indication: Nervousness
     Dosage: 1 TAB/ MORNING WITHIN BREAKFAST / OR AFTER BREAKFAST
     Route: 048
  5. TORSEMIDE [Concomitant]
     Active Substance: TORSEMIDE
     Indication: Hypertension
     Dosage: 1TAB/ BEFORE BREAKFAST
     Route: 048

REACTIONS (2)
  - Road traffic accident [Recovered/Resolved]
  - Hypoglycaemia [Recovered/Resolved]

NARRATIVE: CASE EVENT DATE: 20210801
